FAERS Safety Report 4262084-3 (Version None)
Quarter: 2004Q1

REPORT INFORMATION
  Report Type: 
  Country: None (occurrence: None)
  Receive Date: 20040102
  Receipt Date: 20031222
  Transmission Date: 20041129
  Serious: Yes (Other)
  Sender: FDA-Public Use
  Company Number: JP-GLAXOSMITHKLINE-B0318626A

PATIENT
  Age: 41 Year
  Sex: Male

DRUGS (3)
  1. EPIVIR [Suspect]
     Dates: start: 20030515
  2. EFAVIRENZ [Suspect]
     Route: 065
     Dates: start: 20030515
  3. SANILVUDINE [Suspect]
     Route: 065
     Dates: start: 20030515

REACTIONS (1)
  - INCONTINENCE [None]
